FAERS Safety Report 23309231 (Version 2)
Quarter: 2024Q1

REPORT INFORMATION
  Report Type: Spontaneous
  Country: US (occurrence: US)
  Receive Date: 20231218
  Receipt Date: 20240130
  Transmission Date: 20240409
  Serious: No
  Sender: FDA-Public Use
  Company Number: US-JNJFOC-20231226383

PATIENT
  Sex: Female

DRUGS (1)
  1. MOTRIN [Suspect]
     Active Substance: IBUPROFEN
     Indication: Accidental exposure to product
     Dosage: SHE WAS ABLE TO BRUSH HER TEETH FOR A LITTLE BIT WITH MOTRIN
     Route: 048

REACTIONS (1)
  - Accidental exposure to product [Unknown]
